FAERS Safety Report 8985530 (Version 1)
Quarter: 2012Q4

REPORT INFORMATION
  Report Type: Report from Study
  Country: ES (occurrence: ES)
  Receive Date: 20121226
  Receipt Date: 20121226
  Transmission Date: 20130627
  Serious: Yes (Hospitalization)
  Sender: FDA-Public Use
  Company Number: ES-ABBOTT-12P-144-1023553-00

PATIENT
  Age: 35 Year
  Sex: Female

DRUGS (14)
  1. HUMIRA [Suspect]
     Indication: CROHN^S DISEASE
     Dosage: 160 mg (baseline)
     Route: 058
     Dates: start: 20061215, end: 20061215
  2. HUMIRA [Suspect]
     Dosage: 80 mg week 2
     Route: 058
  3. HUMIRA [Suspect]
     Route: 058
     Dates: end: 20091124
  4. KETOROLACO [Concomitant]
     Indication: PAIN
     Dates: start: 20090520, end: 20090521
  5. INVESTIGATIONAL DRUG [Concomitant]
     Indication: FISTULA
     Dates: start: 20100202
  6. CERTOLIZUMAB [Concomitant]
     Indication: CONDITION AGGRAVATED
     Dates: start: 20110201, end: 20110411
  7. CERTOLIZUMAB [Concomitant]
     Indication: ANAL FISTULA
  8. CERTOLIZUMAB [Concomitant]
     Indication: FISTULA DISCHARGE
  9. METOTREXATO [Concomitant]
     Indication: DRUG DEPENDENCE
     Dates: start: 201106, end: 20110830
  10. METOTREXATO [Concomitant]
     Indication: DRUG INTOLERANCE
  11. METRONIDAZOL [Concomitant]
     Indication: FISTULA DISCHARGE
     Dates: start: 20110809, end: 20110830
  12. METRONIDAZOL [Concomitant]
     Indication: PAIN
  13. METRONIDAZOL [Concomitant]
     Indication: PYREXIA
  14. FOLIC ACID [Concomitant]
     Indication: VITAMIN SUPPLEMENTATION
     Dates: start: 201106, end: 20110830

REACTIONS (1)
  - Fistula discharge [Unknown]
